FAERS Safety Report 8920632 (Version 2)
Quarter: 2013Q1

REPORT INFORMATION
  Report Type: Spontaneous
  Country: US (occurrence: US)
  Receive Date: 20121122
  Receipt Date: 20130103
  Transmission Date: 20140127
  Serious: No
  Sender: FDA-Public Use
  Company Number: US-009507513-1211USA006347

PATIENT
  Sex: Male

DRUGS (7)
  1. PEGINTRON [Suspect]
     Indication: HEPATITIS C
     Dosage: 120 MICROGRAM/0.5ML, QW
     Route: 058
     Dates: start: 201206
  2. RIBAVIRIN [Suspect]
     Indication: HEPATITIS C
     Dosage: UNK
  3. GABAPENTIN [Concomitant]
  4. CHANTIX [Concomitant]
  5. VENLAFAXINE HYDROCHLORIDE [Concomitant]
  6. ROBAXIN [Concomitant]
  7. VALIUM [Concomitant]

REACTIONS (5)
  - Muscular weakness [Unknown]
  - Headache [Unknown]
  - Fatigue [Unknown]
  - Haematuria [Recovering/Resolving]
  - Product quality issue [Unknown]
